FAERS Safety Report 10436006 (Version 1)
Quarter: 2014Q3

REPORT INFORMATION
  Report Type: Spontaneous
  Country: US (occurrence: US)
  Receive Date: 20140908
  Receipt Date: 20140908
  Transmission Date: 20150326
  Serious: No
  Sender: FDA-Public Use
  Company Number: US-GLAXOSMITHKLINE-A1081613A

PATIENT
  Sex: Female

DRUGS (17)
  1. METOPROLOL [Concomitant]
     Active Substance: METOPROLOL
  2. MAGNESIUM [Concomitant]
     Active Substance: MAGNESIUM
  3. ADVAIR HFA [Suspect]
     Active Substance: FLUTICASONE PROPIONATE\SALMETEROL XINAFOATE
     Indication: CHRONIC OBSTRUCTIVE PULMONARY DISEASE
     Dosage: 1PUFF TWICE PER DAY
     Route: 055
     Dates: start: 200807
  4. VENTOLIN [Suspect]
     Active Substance: ALBUTEROL SULFATE
     Indication: PRODUCT USED FOR UNKNOWN INDICATION
     Dosage: 90MCG UNKNOWN
     Route: 065
     Dates: start: 20130321
  5. LOVAZA [Suspect]
     Active Substance: OMEGA-3-ACID ETHYL ESTERS
     Indication: PRODUCT USED FOR UNKNOWN INDICATION
     Dosage: 1G UNKNOWN
     Route: 065
     Dates: start: 20100609
  6. METFORMIN [Concomitant]
     Active Substance: METFORMIN HYDROCHLORIDE
  7. LIDODERM [Concomitant]
     Active Substance: LIDOCAINE
  8. FUROSEMIDE. [Concomitant]
     Active Substance: FUROSEMIDE
  9. PRANDIN [Concomitant]
     Active Substance: REPAGLINIDE
  10. GEMCITABINE [Concomitant]
     Active Substance: GEMCITABINE\GEMCITABINE HYDROCHLORIDE
  11. PREDNISONE. [Concomitant]
     Active Substance: PREDNISONE
  12. CALCIUM + D [Concomitant]
     Active Substance: CALCIUM\VITAMIN D
  13. BREO ELLIPTA [Suspect]
     Active Substance: FLUTICASONE FUROATE\VILANTEROL TRIFENATATE
     Indication: CHRONIC OBSTRUCTIVE PULMONARY DISEASE
     Dosage: 1PUFF PER DAY
     Route: 055
     Dates: start: 201406, end: 201406
  14. ATROVENT [Concomitant]
     Active Substance: IPRATROPIUM BROMIDE
  15. POTASSIUM CHLORIDE. [Concomitant]
     Active Substance: POTASSIUM CHLORIDE
  16. COMBIVENT [Concomitant]
     Active Substance: ALBUTEROL SULFATE\IPRATROPIUM BROMIDE
  17. SPIRIVA [Concomitant]
     Active Substance: TIOTROPIUM BROMIDE MONOHYDRATE

REACTIONS (2)
  - Dyspnoea [Not Recovered/Not Resolved]
  - Inhalation therapy [Not Recovered/Not Resolved]
